FAERS Safety Report 5011321-6 (Version None)
Quarter: 2006Q2

REPORT INFORMATION
  Report Type: 
  Country: None (occurrence: None)
  Receive Date: 20060525
  Receipt Date: 20060305
  Transmission Date: 20061013
  Serious: Yes (Hospitalization)
  Sender: FDA-Public Use
  Company Number: FR-BOEHRINGER INGELHEIM PHARMACEUTICALS, INC.-2006-FF-00189FF

PATIENT
  Sex: Female
  Weight: 75 kg

DRUGS (3)
  1. VIRAMUNE [Suspect]
     Indication: IMMUNODEFICIENCY
     Dates: start: 20040401, end: 20050901
  2. VIRAMUNE [Suspect]
     Route: 048
     Dates: start: 20051118, end: 20060207
  3. KALETRA [Concomitant]
     Indication: IMMUNODEFICIENCY
     Dosage: 4 CAPS TWICE DAILY
     Route: 048
     Dates: start: 20051118

REACTIONS (2)
  - CYTOLYTIC HEPATITIS [None]
  - INTERSTITIAL LUNG DISEASE [None]
